FAERS Safety Report 19167836 (Version 1)
Quarter: 2021Q2

REPORT INFORMATION
  Report Type: Spontaneous
  Country: US (occurrence: US)
  Receive Date: 20210421
  Receipt Date: 20210421
  Transmission Date: 20210717
  Serious: Yes (Other)
  Sender: FDA-Public Use
  Company Number: None

PATIENT
  Age: 40 Year
  Sex: Male
  Weight: 92.25 kg

DRUGS (1)
  1. ADAMS SECRET 3000 [DIETARY SUPPLEMENT] [Suspect]
     Active Substance: DIETARY SUPPLEMENT
     Indication: PRODUCT USED FOR UNKNOWN INDICATION
     Dosage: ?          OTHER STRENGTH:1 CAPSULE;QUANTITY:10 CAPSULE(S);OTHER FREQUENCY:1 EVERY 60 HR;?
     Route: 048
     Dates: start: 20201215, end: 20210125

REACTIONS (3)
  - Pain [None]
  - Back pain [None]
  - Sciatica [None]

NARRATIVE: CASE EVENT DATE: 20201215
